FAERS Safety Report 25877680 (Version 1)
Quarter: 2025Q4

REPORT INFORMATION
  Report Type: Spontaneous
  Country: CN (occurrence: CN)
  Receive Date: 20251003
  Receipt Date: 20251003
  Transmission Date: 20260118
  Serious: Yes (Other)
  Sender: BAYER HEALTHCARE PHARMACEUTICALS INC.
  Company Number: CN-BAYER-2025A126744

PATIENT
  Age: 69 Year
  Sex: Female

DRUGS (3)
  1. SORAFENIB [Suspect]
     Active Substance: SORAFENIB
     Indication: Acute promyelocytic leukaemia
  2. ARSENIC TRIOXIDE [Concomitant]
     Active Substance: ARSENIC TRIOXIDE
  3. TRETINOIN [Concomitant]
     Active Substance: TRETINOIN

REACTIONS (4)
  - Subarachnoid haemorrhage [None]
  - Coma [None]
  - Product use in unapproved indication [None]
  - Product prescribing issue [None]
